FAERS Safety Report 22835035 (Version 5)
Quarter: 2023Q4

REPORT INFORMATION
  Report Type: Report from Study
  Country: CA (occurrence: CA)
  Receive Date: 20230818
  Receipt Date: 20231208
  Transmission Date: 20240109
  Serious: Yes (Hospitalization)
  Sender: FDA-Public Use
  Company Number: CA-ABBVIE-5320522

PATIENT
  Sex: Female

DRUGS (7)
  1. SKYRIZI [Suspect]
     Active Substance: RISANKIZUMAB-RZAA
     Indication: Crohn^s disease
     Dosage: WEEK 12 AND EVERY 8 WEEKS
     Route: 058
     Dates: start: 2023
  2. SKYRIZI [Suspect]
     Active Substance: RISANKIZUMAB-RZAA
     Indication: Crohn^s disease
     Dosage: WEEK 4, ROA INTRAVENOUS (NOT OTHERWISE SPECIFIED)
     Route: 042
     Dates: start: 2023, end: 2023
  3. SKYRIZI [Suspect]
     Active Substance: RISANKIZUMAB-RZAA
     Indication: Crohn^s disease
     Dosage: WEEK 0, ROA INTRAVENOUS (NOT OTHERWISE SPECIFIED)
     Route: 042
     Dates: start: 20230427, end: 2023
  4. SKYRIZI [Suspect]
     Active Substance: RISANKIZUMAB-RZAA
     Indication: Crohn^s disease
     Route: 042
     Dates: start: 2023
  5. SKYRIZI [Suspect]
     Active Substance: RISANKIZUMAB-RZAA
     Indication: Crohn^s disease
     Route: 042
     Dates: start: 2023, end: 2023
  6. VANCOMYCIN [Concomitant]
     Active Substance: VANCOMYCIN
     Indication: Clostridium difficile infection
     Dates: start: 2023
  7. VANCOMYCIN [Concomitant]
     Active Substance: VANCOMYCIN
     Indication: Clostridium difficile infection
     Dates: start: 2023

REACTIONS (10)
  - Clostridium difficile infection [Recovered/Resolved]
  - Inflammation [Unknown]
  - Diarrhoea [Unknown]
  - Bowel movement irregularity [Unknown]
  - C-reactive protein increased [Unknown]
  - Clostridium difficile infection [Unknown]
  - Crohn^s disease [Unknown]
  - Enteritis [Unknown]
  - Inflammation [Recovered/Resolved]
  - Anastomotic stenosis [Unknown]

NARRATIVE: CASE EVENT DATE: 20230101
